FAERS Safety Report 7136084-X (Version None)
Quarter: 2010Q4

REPORT INFORMATION
  Report Type: 
  Country: None (occurrence: None)
  Receive Date: 20101204
  Receipt Date: 20101118
  Transmission Date: 20110411
  Serious: Yes (Death, Hospitalization)
  Sender: FDA-Public Use
  Company Number: JP-BAYER-201010993BYL

PATIENT
  Sex: Male
  Weight: 54 kg

DRUGS (8)
  1. NEXAVAR [Suspect]
     Dosage: AFTER MORNING, AFTER DINNER
     Route: 048
     Dates: start: 20100113, end: 20100218
  2. URSO 250 [Concomitant]
     Indication: HEPATITIS CHOLESTATIC
     Dosage: AFTER MORNING, AFTER LUNCH, AFTER DINNER
     Route: 048
  3. AMLODIPINE [Concomitant]
     Indication: HYPERTENSION
     Dosage: AFTER MORNING
     Route: 048
  4. LENDORMIN [Concomitant]
     Indication: INSOMNIA
     Dosage: 0.25 MG (DAILY DOSE), , ORAL
     Route: 048
  5. FAMOTIDINE [Concomitant]
     Indication: STRESS ULCER
     Dosage: AFTER MORNING, AFTER DINNER
     Route: 048
  6. UREPEARL [Concomitant]
     Indication: PROPHYLAXIS
     Route: 061
  7. HIRUDOID [Concomitant]
     Indication: PROPHYLAXIS
     Route: 061
  8. ISODINE [Concomitant]
     Indication: PROPHYLAXIS
     Route: 002

REACTIONS (3)
  - HEPATIC ENCEPHALOPATHY [None]
  - HEPATIC FAILURE [None]
  - PYREXIA [None]
